FAERS Safety Report 18692518 (Version 2)
Quarter: 2021Q1

REPORT INFORMATION
  Report Type: Spontaneous
  Country: US (occurrence: US)
  Receive Date: 20210103
  Receipt Date: 20210107
  Transmission Date: 20210419
  Serious: Yes (Other)
  Sender: FDA-Public Use
  Company Number: US-JNJFOC-20201254251

PATIENT
  Sex: Female

DRUGS (1)
  1. NEUTROGENA HYDRO BOOST CITY SHIELD WATER GEL SUNSCREEN BROAD SPECTRUM SPF 25 [Suspect]
     Active Substance: AVOBENZONE\HOMOSALATE\OCTISALATE\OCTOCRYLENE
     Indication: PRODUCT USED FOR UNKNOWN INDICATION
     Route: 061

REACTIONS (2)
  - Syncope [Unknown]
  - Discomfort [Unknown]
